FAERS Safety Report 12354991 (Version 1)
Quarter: 2016Q2

REPORT INFORMATION
  Report Type: Spontaneous
  Country: US (occurrence: US)
  Receive Date: 20160511
  Receipt Date: 20160511
  Transmission Date: 20160815
  Serious: Yes (Death, Other)
  Sender: FDA-Public Use
  Company Number: US-HOSPIRA-3268760

PATIENT
  Age: 29 Year
  Sex: Male
  Weight: 64.8 kg

DRUGS (4)
  1. GEMTUZUMAB OZOGAMICIN [Suspect]
     Active Substance: GEMTUZUMAB OZOGAMICIN
     Indication: LEUKAEMIA RECURRENT
     Dosage: 9 MG/M2 ON DAY 1 AND DAY 15
     Route: 042
     Dates: start: 20160311, end: 20160325
  2. CYTARABINE. [Suspect]
     Active Substance: CYTARABINE
     Indication: PRODUCT USED FOR UNKNOWN INDICATION
  3. NEXAVAR [Suspect]
     Active Substance: SORAFENIB
     Indication: PRODUCT USED FOR UNKNOWN INDICATION
     Dates: start: 201601, end: 20160308
  4. CLOFARABINE [Suspect]
     Active Substance: CLOFARABINE
     Indication: PRODUCT USED FOR UNKNOWN INDICATION

REACTIONS (12)
  - Periorbital cellulitis [Recovered/Resolved]
  - Pneumonia [Recovered/Resolved]
  - Mental impairment [Unknown]
  - Sinusitis [Unknown]
  - Drug ineffective [Fatal]
  - Exophthalmos [Unknown]
  - Acute respiratory distress syndrome [Recovered/Resolved]
  - Eyelid ptosis [Unknown]
  - Chloroma [Unknown]
  - Ascites [Unknown]
  - Graft versus host disease [Unknown]
  - Pulmonary oedema [Recovered/Resolved]

NARRATIVE: CASE EVENT DATE: 20160225
